FAERS Safety Report 21411946 (Version 1)
Quarter: 2022Q4

REPORT INFORMATION
  Report Type: Report from Study
  Country: GB (occurrence: GB)
  Receive Date: 20221005
  Receipt Date: 20221005
  Transmission Date: 20230113
  Serious: Yes (Hospitalization)
  Sender: FDA-Public Use
  Company Number: GB-MYLANLABS-2022M1110981

PATIENT
  Sex: Male

DRUGS (5)
  1. TOBI PODHALER [Suspect]
     Active Substance: TOBRAMYCIN
     Indication: Cystic fibrosis
     Dosage: 28 MILLIGRAM, BID
  2. PULMOZYME [Suspect]
     Active Substance: DORNASE ALFA
     Indication: Product used for unknown indication
     Dosage: 1 DOSAGE FORM, QD (VIAL: INHALE ONE NEBULE ONCE DAILY AS DIRECTED.)
     Route: 065
  3. KALYDECO [Concomitant]
     Active Substance: IVACAFTOR
     Dosage: 150 MILLIGRAM, QD (TAKE ONE TABLET IN THE EVENING)
     Route: 065
  4. ELEXACAFTOR\IVACAFTOR\TEZACAFTOR [Concomitant]
     Active Substance: ELEXACAFTOR\IVACAFTOR\TEZACAFTOR
     Dosage: UNK UNK, AM (75/50/100MG: IN THE MORNING AS DIRECTED)
     Route: 065
  5. COLISTIMETHATE SODIUM [Concomitant]
     Active Substance: COLISTIMETHATE SODIUM
     Dosage: UNK UNK, BID (1.6625MIU: INHALE THE CONTENTS OF ONE CAPSULE, TWICE A DAY)
     Route: 065

REACTIONS (1)
  - Hospitalisation [Unknown]
